FAERS Safety Report 5015337-5 (Version None)
Quarter: 2006Q2

REPORT INFORMATION
  Report Type: 
  Country: None (occurrence: None)
  Receive Date: 20060601
  Receipt Date: 20050926
  Transmission Date: 20061013
  Serious: Yes (Other)
  Sender: FDA-Public Use
  Company Number: PHEH2005US10693

PATIENT
  Age: 56 Year
  Sex: Female
  Weight: 117.46 kg

DRUGS (9)
  1. AREDIA [Suspect]
     Indication: MULTIPLE MYELOMA
     Dosage: 90 MG, QW2
     Dates: start: 19950101, end: 20020501
  2. AREDIA [Suspect]
     Dates: end: 20050401
  3. ZOMETA [Suspect]
     Dosage: Q2W
     Dates: start: 20020510, end: 20050401
  4. ZOMETA [Suspect]
     Dates: start: 20041115
  5. TUMS [Concomitant]
     Dosage: UNK, BID
  6. PENICILLIN [Concomitant]
     Dosage: 1000 MG, TID
     Route: 048
     Dates: start: 20050408
  7. LORCET-HD [Concomitant]
  8. VELCADE [Concomitant]
     Dosage: 2.6 MG, QW
     Dates: start: 20041115, end: 20051215
  9. ANZEMET [Concomitant]
     Dates: start: 20030101

REACTIONS (18)
  - ANAEMIA [None]
  - BACK PAIN [None]
  - BENIGN SOFT TISSUE NEOPLASM [None]
  - BONE LESION [None]
  - CHOLELITHIASIS [None]
  - DRY SOCKET [None]
  - ENDODONTIC PROCEDURE [None]
  - FOOT FRACTURE [None]
  - OSTEITIS [None]
  - OSTEOMYELITIS [None]
  - OSTEOMYELITIS DRAINAGE [None]
  - OSTEONECROSIS [None]
  - PAIN IN JAW [None]
  - SPINAL OSTEOARTHRITIS [None]
  - STRESS FRACTURE [None]
  - SWELLING FACE [None]
  - TOOTH EXTRACTION [None]
  - UPPER RESPIRATORY TRACT INFECTION [None]
